FAERS Safety Report 8298780-0 (Version None)
Quarter: 2012Q2

REPORT INFORMATION
  Report Type: 
  Country: None (occurrence: None)
  Receive Date: 20120419
  Receipt Date: 20120411
  Transmission Date: 20120825
  Serious: Yes (Other)
  Sender: FDA-Public Use
  Company Number: TR-JNJFOC-20120407222

PATIENT
  Age: 51 Year
  Sex: Female

DRUGS (1)
  1. RIVAROXABAN [Suspect]
     Indication: HIP ARTHROPLASTY
     Route: 048

REACTIONS (2)
  - OEDEMA PERIPHERAL [None]
  - DEEP VEIN THROMBOSIS [None]
